FAERS Safety Report 6368987-8 (Version None)
Quarter: 2009Q3

REPORT INFORMATION
  Report Type: 
  Country: None (occurrence: None)
  Receive Date: 20090918
  Receipt Date: 20090918
  Transmission Date: 20100115
  Serious: Yes (Hospitalization)
  Sender: FDA-Public Use
  Company Number: None

PATIENT
  Age: 84 Year
  Sex: Male

DRUGS (2)
  1. WARFARIN [Suspect]
     Indication: ATRIAL FIBRILLATION
     Dosage: 3 MG QDAY ON MWFSASU PO
     Route: 048
  2. WARFARIN [Suspect]
     Dosage: 2 MG QDAY ON THTHU PO
     Route: 048

REACTIONS (3)
  - DRUG TOXICITY [None]
  - HAEMATINURIA [None]
  - INTERNATIONAL NORMALISED RATIO INCREASED [None]
